FAERS Safety Report 7111493-3 (Version None)
Quarter: 2010Q4

REPORT INFORMATION
  Report Type: 
  Country: None (occurrence: None)
  Receive Date: 20101105
  Receipt Date: 20101026
  Transmission Date: 20110411
  Serious: Yes (Hospitalization)
  Sender: FDA-Public Use
  Company Number: B0682594A

PATIENT
  Age: 35 Year
  Sex: Female

DRUGS (2)
  1. ERYTHROMYCIN [Suspect]
     Indication: BRONCHITIS
     Dosage: 500 MG, THREE TIMES PER DAY,
  2. CAFERGOT TABLET-ZYBAN (CAFERGOT) [Suspect]
     Indication: HEADACHE
     Dosage: 3 TABLET,

REACTIONS (10)
  - ANGIOGRAM PERIPHERAL ABNORMAL [None]
  - DRUG INTERACTION [None]
  - ERGOT POISONING [None]
  - HEADACHE [None]
  - HYPOAESTHESIA [None]
  - OROPHARYNGEAL PAIN [None]
  - PAIN IN EXTREMITY [None]
  - PARAESTHESIA [None]
  - PERIPHERAL COLDNESS [None]
  - SENSORY DISTURBANCE [None]
